FAERS Safety Report 23881109 (Version 1)
Quarter: 2024Q2

REPORT INFORMATION
  Report Type: Spontaneous
  Country: AU (occurrence: AU)
  Receive Date: 20240521
  Receipt Date: 20240521
  Transmission Date: 20240716
  Serious: Yes (Other)
  Sender: FDA-Public Use
  Company Number: AU-SUN PHARMACEUTICAL INDUSTRIES LTD-2024R1-446861

PATIENT
  Age: 66 Year
  Sex: Female

DRUGS (10)
  1. RISPERIDONE [Suspect]
     Active Substance: RISPERIDONE
     Indication: Product used for unknown indication
     Dosage: 0.5 MILLIGRAM
     Route: 048
     Dates: start: 201912, end: 20191230
  2. MIRTAZAPINE [Suspect]
     Active Substance: MIRTAZAPINE
     Indication: Product used for unknown indication
     Dosage: 15 MILLIGRAM X 0.5 TAB
     Route: 065
     Dates: start: 20191129
  3. MIRTAZAPINE [Suspect]
     Active Substance: MIRTAZAPINE
     Dosage: 7.5 UNK
     Route: 065
     Dates: start: 20191213
  4. MIRTAZAPINE [Suspect]
     Active Substance: MIRTAZAPINE
     Dosage: 45 UNK
     Route: 065
     Dates: start: 20191230
  5. LEXAPRO [Suspect]
     Active Substance: ESCITALOPRAM OXALATE
     Indication: Product used for unknown indication
     Dosage: 20 MILLIGRAM PER MILLILITRE
     Route: 065
     Dates: start: 20191027, end: 20191108
  6. TEMAZEPAM [Suspect]
     Active Substance: TEMAZEPAM
     Indication: Product used for unknown indication
     Dosage: 10 MILLIGRAM X 0.5MG TAB
     Route: 065
     Dates: start: 20191029, end: 20191129
  7. VALIUM [Suspect]
     Active Substance: DIAZEPAM
     Indication: Product used for unknown indication
     Dosage: 2 MILLIGRAM
     Route: 065
     Dates: start: 20191004, end: 20191028
  8. VALIUM [Suspect]
     Active Substance: DIAZEPAM
     Dosage: 5 UNK
     Route: 065
     Dates: start: 20191004, end: 20191028
  9. MIRTAZAPINE [Suspect]
     Active Substance: MIRTAZAPINE
     Indication: Product used for unknown indication
     Dosage: 30 MILLIGRAM ONCE DAILY
     Route: 065
     Dates: start: 20200323
  10. MIRTAZAPINE [Suspect]
     Active Substance: MIRTAZAPINE
     Dosage: 15 MILLIGRAM
     Route: 065
     Dates: start: 20200513

REACTIONS (19)
  - Abnormal behaviour [Recovered/Resolved]
  - Weight increased [Not Recovered/Not Resolved]
  - Agitation [Recovered/Resolved]
  - Autoscopy [Recovered/Resolved]
  - Blood iron decreased [Not Recovered/Not Resolved]
  - Confusional state [Recovered/Resolved]
  - Constipation [Recovered/Resolved]
  - Dry mouth [Recovered/Resolved]
  - Fat tissue increased [Not Recovered/Not Resolved]
  - Hypertension [Recovered/Resolved]
  - Hyperthyroidism [Not Recovered/Not Resolved]
  - Hyponatraemia [Recovered/Resolved]
  - Insomnia [Recovered/Resolved]
  - Irritability [Recovered/Resolved]
  - Oedema [Recovered/Resolved]
  - Patient elopement [Recovered/Resolved]
  - Restlessness [Recovered/Resolved]
  - Taste disorder [Recovered/Resolved]
  - Weight decreased [Unknown]
